FAERS Safety Report 14240110 (Version 1)
Quarter: 2017Q4

REPORT INFORMATION
  Report Type: Spontaneous
  Country: US (occurrence: US)
  Receive Date: 20171129
  Receipt Date: 20171129
  Transmission Date: 20180321
  Serious: Yes (Other)
  Sender: FDA-Public Use
  Company Number: None

PATIENT
  Age: 55 Year
  Sex: Male
  Weight: 81 kg

DRUGS (18)
  1. MONTELUKAST [Concomitant]
     Active Substance: MONTELUKAST SODIUM
  2. GABAPENTIN. [Suspect]
     Active Substance: GABAPENTIN
     Indication: SURGERY
     Route: 048
  3. VERAPAMIL [Concomitant]
     Active Substance: VERAPAMIL HYDROCHLORIDE
  4. VITAMIN D [Concomitant]
     Active Substance: CHOLECALCIFEROL
  5. TUMERIC [Concomitant]
     Active Substance: HERBALS\TURMERIC
  6. CYCLOBENZAPRINE. [Concomitant]
     Active Substance: CYCLOBENZAPRINE
  7. MELOXICAM. [Concomitant]
     Active Substance: MELOXICAM
  8. PROCTOFOAM [Concomitant]
     Active Substance: PRAMOXINE HYDROCHLORIDE
  9. ATORVASTATIN [Concomitant]
     Active Substance: ATORVASTATIN
  10. LEVOTHYROXINE. [Concomitant]
     Active Substance: LEVOTHYROXINE
  11. GABAPENTIN. [Suspect]
     Active Substance: GABAPENTIN
     Indication: CERVIX DISORDER
     Route: 048
  12. ATENOLOL. [Concomitant]
     Active Substance: ATENOLOL
  13. DIAZEPAM. [Concomitant]
     Active Substance: DIAZEPAM
  14. LIOCAINE PATCH AND OINTMENT [Concomitant]
  15. TIZANIDINE. [Concomitant]
     Active Substance: TIZANIDINE
  16. AZELASTIN NASAL SPRAY [Concomitant]
  17. CETIRIZINE [Concomitant]
     Active Substance: CETIRIZINE HYDROCHLORIDE
  18. CIMETIDINE [Concomitant]
     Active Substance: CIMETIDINE

REACTIONS (2)
  - Acne [None]
  - Folliculitis [None]

NARRATIVE: CASE EVENT DATE: 20160315
